FAERS Safety Report 21311633 (Version 1)
Quarter: 2022Q3

REPORT INFORMATION
  Report Type: Spontaneous
  Country: ES (occurrence: ES)
  Receive Date: 20220909
  Receipt Date: 20220909
  Transmission Date: 20221026
  Serious: Yes (Life-Threatening)
  Sender: FDA-Public Use
  Company Number: ES-SUN PHARMACEUTICAL INDUSTRIES LTD-2022RR-354102

PATIENT
  Age: 3 Year
  Sex: Male

DRUGS (2)
  1. MORPHINE [Interacting]
     Active Substance: MORPHINE
     Indication: Allogenic stem cell transplantation
     Dosage: 10 MICROGRAM/KILOGRAM, Q1H
     Route: 040
     Dates: start: 20220720, end: 20220721
  2. LEVOMEPROMAZINE MALEATE [Interacting]
     Active Substance: LEVOMEPROMAZINE MALEATE
     Indication: Pruritus
     Dosage: 1 MILLIGRAM, UNK
     Route: 040
     Dates: start: 20220721, end: 20220721

REACTIONS (2)
  - Respiratory failure [Recovered/Resolved]
  - Depressed level of consciousness [Recovered/Resolved]

NARRATIVE: CASE EVENT DATE: 20220721
